FAERS Safety Report 5195332-6 (Version None)
Quarter: 2006Q4

REPORT INFORMATION
  Report Type: 
  Country: None (occurrence: None)
  Receive Date: 20061229
  Receipt Date: 20061218
  Transmission Date: 20070319
  Serious: Yes (Death)
  Sender: FDA-Public Use
  Company Number: FR-PFIZER INC-2006154817

PATIENT
  Age: 84 Year
  Sex: Female
  Weight: 65 kg

DRUGS (10)
  1. NEURONTIN [Suspect]
     Route: 048
  2. GLICLAZIDE [Suspect]
     Route: 048
  3. FOZITEC [Suspect]
     Route: 048
  4. BUMETANIDE [Concomitant]
  5. NICERGOLINE [Concomitant]
  6. TRINITRINE [Concomitant]
  7. NICORANDIL [Concomitant]
  8. CELIPROLOL HYDROCHLORIDE [Concomitant]
  9. URAPIDIL [Concomitant]
  10. ALL OTHER THERAPEUTIC PRODUCTS [Concomitant]

REACTIONS (2)
  - DEATH [None]
  - HEPATITIS FULMINANT [None]
